FAERS Safety Report 20046425 (Version 1)
Quarter: 2021Q4

REPORT INFORMATION
  Report Type: Spontaneous
  Country: FI (occurrence: FI)
  Receive Date: 20211109
  Receipt Date: 20211109
  Transmission Date: 20220303
  Serious: Yes (Other)
  Sender: FDA-Public Use
  Company Number: FI-AMGEN-FINSP2021171572

PATIENT
  Age: 77 Year
  Sex: Male

DRUGS (7)
  1. XGEVA [Suspect]
     Active Substance: DENOSUMAB
     Indication: Metastases to bone
     Dosage: UNK
     Route: 065
  2. XGEVA [Suspect]
     Active Substance: DENOSUMAB
     Indication: Hormone-refractory prostate cancer
  3. BICALUTAMIDE [Concomitant]
     Active Substance: BICALUTAMIDE
  4. DOCETAXEL [Concomitant]
     Active Substance: DOCETAXEL
  5. ABIRATERONE [Concomitant]
     Active Substance: ABIRATERONE
  6. ENZALUTAMIDE [Concomitant]
     Active Substance: ENZALUTAMIDE
  7. GOSERELIN [Concomitant]
     Active Substance: GOSERELIN

REACTIONS (2)
  - Prostate cancer recurrent [Unknown]
  - Therapy partial responder [Unknown]
